FAERS Safety Report 9482820 (Version 1)
Quarter: 2013Q3

REPORT INFORMATION
  Report Type: Spontaneous
  Country: US (occurrence: US)
  Receive Date: 20130828
  Receipt Date: 20130828
  Transmission Date: 20140515
  Serious: Yes (Other)
  Sender: FDA-Public Use
  Company Number: US-ASTRAZENECA-2013SE64719

PATIENT
  Sex: Female

DRUGS (6)
  1. PRILOSEC [Suspect]
     Indication: ULCER
     Route: 048
     Dates: start: 1994
  2. PRILOSEC [Suspect]
     Indication: HIATUS HERNIA
     Route: 048
     Dates: start: 1994
  3. PRILOSEC [Suspect]
     Indication: GASTROOESOPHAGEAL REFLUX DISEASE
     Route: 048
     Dates: start: 1994
  4. PRILOSEC OTC [Suspect]
     Indication: HIATUS HERNIA
     Route: 048
     Dates: end: 2012
  5. PRILOSEC OTC [Suspect]
     Indication: ULCER
     Route: 048
     Dates: end: 2012
  6. PRILOSEC OTC [Suspect]
     Indication: GASTROOESOPHAGEAL REFLUX DISEASE
     Route: 048
     Dates: end: 2012

REACTIONS (12)
  - Benign ovarian tumour [Unknown]
  - Pancreatitis [Unknown]
  - Uterine neoplasm [Recovered/Resolved]
  - Duodenal ulcer [Not Recovered/Not Resolved]
  - Hiatus hernia [Unknown]
  - Gastrooesophageal reflux disease [Recovered/Resolved]
  - Oesophageal mucosal hyperplasia [Not Recovered/Not Resolved]
  - Scar [Not Recovered/Not Resolved]
  - Gastrooesophageal reflux disease [Unknown]
  - Choking [Unknown]
  - Lacrimation increased [Unknown]
  - Drug ineffective [Recovered/Resolved]
